FAERS Safety Report 14468642 (Version 1)
Quarter: 2018Q1

REPORT INFORMATION
  Report Type: Report from Study
  Country: JP (occurrence: JP)
  Receive Date: 20180131
  Receipt Date: 20180131
  Transmission Date: 20180509
  Serious: Yes (Other)
  Sender: FDA-Public Use
  Company Number: JP-JNJFOC-20180133127

PATIENT
  Age: 54 Year
  Sex: Male
  Weight: 78 kg

DRUGS (2)
  1. DEXAMETHASONE. [Concomitant]
     Active Substance: DEXAMETHASONE
     Route: 065
     Dates: start: 20160201
  2. YONDELIS [Suspect]
     Active Substance: TRABECTEDIN
     Indication: MYXOID LIPOSARCOMA
     Dosage: CYCLE 1 TO CYCLE 8
     Route: 042
     Dates: start: 20160201, end: 20170201

REACTIONS (4)
  - Haemorrhoids [Unknown]
  - Neutrophil count decreased [Recovered/Resolved]
  - Colon adenoma [Unknown]
  - Hepatic function abnormal [Recovered/Resolved]

NARRATIVE: CASE EVENT DATE: 20160203
